FAERS Safety Report 22177253 (Version 1)
Quarter: 2023Q2

REPORT INFORMATION
  Report Type: Spontaneous
  Country: SK (occurrence: SI)
  Receive Date: 20230405
  Receipt Date: 20230405
  Transmission Date: 20230721
  Serious: Yes (Other)
  Sender: FDA-Public Use
  Company Number: SK-BAYER-2021A228811

PATIENT
  Age: 86 Year
  Sex: Male

DRUGS (8)
  1. RIVAROXABAN [Suspect]
     Active Substance: RIVAROXABAN
     Indication: Product used for unknown indication
     Dosage: 20 MG, QD
     Route: 048
     Dates: start: 201603, end: 201803
  2. RIVAROXABAN [Suspect]
     Active Substance: RIVAROXABAN
     Dosage: 15 MG, UNK
     Route: 048
     Dates: start: 201803
  3. TELMISARTAN [Concomitant]
     Active Substance: TELMISARTAN
  4. DOXAZOSIN [Concomitant]
     Active Substance: DOXAZOSIN MESYLATE
  5. BISOPROLOL [Concomitant]
     Active Substance: BISOPROLOL
  6. FENOFIBRATE [Concomitant]
     Active Substance: FENOFIBRATE
  7. FUROSEMIDE [Concomitant]
     Active Substance: FUROSEMIDE
  8. ASPIRIN [Concomitant]
     Active Substance: ASPIRIN

REACTIONS (3)
  - Transcatheter aortic valve implantation [Unknown]
  - Blood creatinine abnormal [Unknown]
  - Glomerular filtration rate abnormal [Unknown]

NARRATIVE: CASE EVENT DATE: 20180301
